FAERS Safety Report 14987829 (Version 1)
Quarter: 2018Q2

REPORT INFORMATION
  Report Type: Spontaneous
  Country: IT (occurrence: IT)
  Receive Date: 20180608
  Receipt Date: 20180608
  Transmission Date: 20180711
  Serious: Yes (Hospitalization)
  Sender: FDA-Public Use
  Company Number: IT-BAYER-2018-106922

PATIENT
  Age: 66 Year
  Sex: Female

DRUGS (3)
  1. LOBIVON [Concomitant]
     Active Substance: NEBIVOLOL HYDROCHLORIDE
     Indication: HYPERTENSION
     Dosage: UNK
     Route: 048
  2. CARDIOASPIRIN 100 MG [Suspect]
     Active Substance: ASPIRIN
     Indication: TRANSIENT ISCHAEMIC ATTACK
     Dosage: UNK
     Route: 048
  3. OMEPRAZOLE. [Concomitant]
     Active Substance: OMEPRAZOLE
     Dosage: UNK
     Route: 048

REACTIONS (5)
  - Cerebral haemorrhage [Recovered/Resolved with Sequelae]
  - Headache [Recovered/Resolved with Sequelae]
  - Vertigo [Recovered/Resolved with Sequelae]
  - Asthenia [Recovered/Resolved with Sequelae]
  - Vomiting [Recovered/Resolved with Sequelae]

NARRATIVE: CASE EVENT DATE: 20180111
